FAERS Safety Report 16160729 (Version 3)
Quarter: 2019Q2

REPORT INFORMATION
  Report Type: Spontaneous
  Country: US (occurrence: US)
  Receive Date: 20190405
  Receipt Date: 20190502
  Transmission Date: 20190711
  Serious: Yes (Other)
  Sender: FDA-Public Use
  Company Number: PHHY2019US075907

PATIENT
  Age: 83 Year
  Sex: Male

DRUGS (7)
  1. BSS [Suspect]
     Active Substance: CALCIUM CHLORIDE\MAGNESIUM CHLORIDE\POTASSIUM CHLORIDE\SODIUM ACETATE\SODIUM CHLORIDE\SODIUM CITRATE
     Indication: EYE IRRIGATION
     Dosage: UNK UNK, ONCE/SINGLE
     Route: 031
     Dates: start: 20190306, end: 20190306
  2. VIGAMOX [Concomitant]
     Active Substance: MOXIFLOXACIN HYDROCHLORIDE
     Indication: PREOPERATIVE CARE
     Route: 065
  3. DUREZOL [Concomitant]
     Active Substance: DIFLUPREDNATE
     Indication: POSTOPERATIVE CARE
  4. LIDOCAINE. [Concomitant]
     Active Substance: LIDOCAINE
     Indication: PREOPERATIVE CARE
     Route: 065
  5. ILEVRO [Concomitant]
     Active Substance: NEPAFENAC
     Indication: PREOPERATIVE CARE
     Dosage: UNK UNK, QD
     Route: 065
  6. OFLOXACIN. [Concomitant]
     Active Substance: OFLOXACIN
     Indication: POSTOPERATIVE CARE
     Dosage: UNK UNK, QID
     Route: 065
  7. DUREZOL [Concomitant]
     Active Substance: DIFLUPREDNATE
     Indication: PREOPERATIVE CARE
     Dosage: UNK UNK, BID
     Route: 065

REACTIONS (9)
  - Miosis [Unknown]
  - Product quality issue [Unknown]
  - Eye inflammation [Recovering/Resolving]
  - Hypopyon [Recovering/Resolving]
  - Aqueous fibrin [Recovering/Resolving]
  - Anterior chamber cell [Recovering/Resolving]
  - Endophthalmitis [Recovering/Resolving]
  - Visual impairment [Recovering/Resolving]
  - Eye irritation [Unknown]

NARRATIVE: CASE EVENT DATE: 20190306
